FAERS Safety Report 7791498-X (Version None)
Quarter: 2011Q4

REPORT INFORMATION
  Report Type: 
  Country: None (occurrence: None)
  Receive Date: 20111003
  Receipt Date: 20110923
  Transmission Date: 20120403
  Serious: Yes (Other)
  Sender: FDA-Public Use
  Company Number: FR-JNJFOC-20110904740

PATIENT
  Sex: Male
  Weight: 93 kg

DRUGS (3)
  1. RISPERDAL [Suspect]
     Indication: ABNORMAL BEHAVIOUR
     Route: 048
     Dates: start: 20101014, end: 20110407
  2. TIAPRIDAL [Concomitant]
     Indication: TENSION
     Route: 048
     Dates: start: 20030101
  3. RISPERDAL [Suspect]
     Indication: ILL-DEFINED DISORDER
     Route: 048
     Dates: start: 20101014, end: 20110407

REACTIONS (1)
  - CYTOLYTIC HEPATITIS [None]
